FAERS Safety Report 8760905 (Version 2)
Quarter: 2013Q1

REPORT INFORMATION
  Report Type: Spontaneous
  Country: ES (occurrence: ES)
  Receive Date: 20120830
  Receipt Date: 20130220
  Transmission Date: 20140127
  Serious: No
  Sender: FDA-Public Use
  Company Number: ES-JNJFOC-20120809121

PATIENT
  Sex: 0

DRUGS (2)
  1. DUROGESIC [Suspect]
     Indication: BREAKTHROUGH PAIN
     Route: 062
  2. ACTIQ [Suspect]
     Indication: BREAKTHROUGH PAIN
     Route: 048

REACTIONS (1)
  - Somnolence [Unknown]
